FAERS Safety Report 4664981-3 (Version None)
Quarter: 2005Q2

REPORT INFORMATION
  Report Type: 
  Country: None (occurrence: None)
  Receive Date: 20050517
  Receipt Date: 20050502
  Transmission Date: 20051028
  Serious: Yes (Other)
  Sender: FDA-Public Use
  Company Number: CA_050508115

PATIENT
  Age: 31 Year
  Sex: Female

DRUGS (1)
  1. ZYPREXA [Suspect]
     Dosage: 2.5 MG DAY
     Dates: start: 20030201, end: 20041001

REACTIONS (2)
  - CORNEAL DYSTROPHY [None]
  - VISUAL ACUITY REDUCED [None]
